FAERS Safety Report 8063553-0 (Version None)
Quarter: 2012Q1

REPORT INFORMATION
  Report Type: 
  Country: None (occurrence: None)
  Receive Date: 20120123
  Receipt Date: 20120118
  Transmission Date: 20120608
  Serious: Yes (Other)
  Sender: FDA-Public Use
  Company Number: US-ROCHE-783671

PATIENT
  Sex: Female
  Weight: 63.56 kg

DRUGS (10)
  1. ORTHO TRI-CYCLEN [Concomitant]
  2. TEQUIN [Concomitant]
  3. DICYCLOMINE [Concomitant]
     Indication: IRRITABLE BOWEL SYNDROME
  4. ACCUTANE [Suspect]
     Indication: ACNE
     Route: 065
     Dates: start: 20000501, end: 20020101
  5. DOXYCYCLINE [Concomitant]
  6. YASMIN [Concomitant]
     Indication: CONTRACEPTION
  7. BIAXIN (UNITED STATES) [Concomitant]
  8. TETRACYCLIN [Concomitant]
  9. GUAIFENESIN [Concomitant]
  10. AKNE-MYCIN (UNITED STATES) [Concomitant]

REACTIONS (4)
  - COLITIS ULCERATIVE [None]
  - EMOTIONAL DISTRESS [None]
  - IRRITABLE BOWEL SYNDROME [None]
  - INFLAMMATORY BOWEL DISEASE [None]
